FAERS Safety Report 19145473 (Version 1)
Quarter: 2021Q2

REPORT INFORMATION
  Report Type: Spontaneous
  Country: US (occurrence: US)
  Receive Date: 20210416
  Receipt Date: 20210416
  Transmission Date: 20210717
  Serious: No
  Sender: FDA-Public Use
  Company Number: US-DRREDDYS-USA/USA/21/0133840

PATIENT
  Age: 23 Year
  Sex: Female

DRUGS (1)
  1. ZENATANE [Suspect]
     Active Substance: ISOTRETINOIN
     Indication: PRODUCT USED FOR UNKNOWN INDICATION
     Dosage: 12/10/2015 7:17:58 PM ,1/12/2016 6:44:32 PM,2/13/2016 5:06:36 PM,3/15/2016 6:35:22 PM,4/15/2016 8:41
     Route: 048

REACTIONS (1)
  - Drug interaction [Unknown]
